FAERS Safety Report 7765181-0 (Version None)
Quarter: 2011Q3

REPORT INFORMATION
  Report Type: 
  Country: None (occurrence: None)
  Receive Date: 20110921
  Receipt Date: 20110916
  Transmission Date: 20111222
  Serious: Yes (Other)
  Sender: FDA-Public Use
  Company Number: US-BAYER-2011-087460

PATIENT
  Sex: Female

DRUGS (3)
  1. YAZ [Suspect]
     Dosage: UNK
     Dates: start: 20010101, end: 20031201
  2. YASMIN [Suspect]
     Dosage: UNK
     Dates: start: 20010101, end: 20031201
  3. DROSPIRENONE AND ETHINYL ESTRADIOL [Suspect]
     Dosage: UNK
     Dates: start: 20010101, end: 20031201

REACTIONS (4)
  - EMOTIONAL DISTRESS [None]
  - CHOLECYSTECTOMY [None]
  - INJURY [None]
  - PAIN [None]
